FAERS Safety Report 9701238 (Version 1)
Quarter: 2013Q4

REPORT INFORMATION
  Report Type: Spontaneous
  Country: US (occurrence: US)
  Receive Date: 20131121
  Receipt Date: 20131121
  Transmission Date: 20140711
  Serious: No
  Sender: FDA-Public Use
  Company Number: US-GILEAD-2008-0016202

PATIENT
  Sex: Female

DRUGS (10)
  1. LETAIRIS [Suspect]
     Indication: PULMONARY ARTERIAL HYPERTENSION
     Route: 048
     Dates: start: 20080328, end: 20080403
  2. SYNTHROID [Concomitant]
     Route: 048
  3. ALLOPURINOL [Concomitant]
     Route: 048
  4. LANOXIN [Concomitant]
     Route: 048
  5. LASIX [Concomitant]
     Route: 048
  6. LASIX [Concomitant]
     Route: 048
  7. NITROFURANTOIN [Concomitant]
     Route: 048
  8. CALCIUM + D [Concomitant]
     Route: 048
  9. COUMADIN [Concomitant]
     Route: 048
  10. CRANBERRY [Concomitant]
     Route: 048

REACTIONS (2)
  - Liver function test abnormal [None]
  - Fluid retention [None]
